FAERS Safety Report 6794129-0 (Version None)
Quarter: 2010Q2

REPORT INFORMATION
  Report Type: 
  Country: None (occurrence: None)
  Receive Date: 20100624
  Receipt Date: 20090708
  Transmission Date: 20101027
  Serious: Yes (Other)
  Sender: FDA-Public Use
  Company Number: JP-PFIZER INC-2009231337

PATIENT
  Age: 80 Year
  Sex: Male

DRUGS (3)
  1. UNASYN [Suspect]
     Indication: INFECTION
     Dosage: UNK
     Route: 042
  2. HOKUNALIN [Concomitant]
  3. DEPAKENE [Concomitant]
     Route: 048

REACTIONS (2)
  - DEHYDRATION [None]
  - HYPERNATRAEMIA [None]
